FAERS Safety Report 10618039 (Version 3)
Quarter: 2015Q2

REPORT INFORMATION
  Report Type: Report from Study
  Country: BR (occurrence: BR)
  Receive Date: 20141202
  Receipt Date: 20150525
  Transmission Date: 20150821
  Serious: Yes (Other)
  Sender: FDA-Public Use
  Company Number: BR-ROCHE-779934

PATIENT
  Sex: Female
  Weight: 82 kg

DRUGS (6)
  1. CYMBALTA [Concomitant]
     Active Substance: DULOXETINE HYDROCHLORIDE
  2. MABTHERA [Suspect]
     Active Substance: RITUXIMAB
     Indication: RHEUMATOID ARTHRITIS
     Route: 042
     Dates: start: 2007, end: 20101015
  3. OMEPRAZOLE. [Concomitant]
     Active Substance: OMEPRAZOLE
  4. RIVOTRIL [Suspect]
     Active Substance: CLONAZEPAM
     Indication: PRODUCT USED FOR UNKNOWN INDICATION
     Dosage: DAILY
     Route: 065
  5. MABTHERA [Suspect]
     Active Substance: RITUXIMAB
     Dosage: RECEIVED THE MOST RECENT INFUSION ON 17/NOV/2014
     Route: 042
     Dates: start: 20091001
  6. ARAVA [Concomitant]
     Active Substance: LEFLUNOMIDE

REACTIONS (3)
  - Arthralgia [Recovered/Resolved]
  - Movement disorder [Unknown]
  - Tracheobronchitis [Recovered/Resolved]
